FAERS Safety Report 15938129 (Version 3)
Quarter: 2019Q3

REPORT INFORMATION
  Report Type: Spontaneous
  Country: GR (occurrence: GR)
  Receive Date: 20190208
  Receipt Date: 20190822
  Transmission Date: 20191004
  Serious: Yes (Other)
  Sender: FDA-Public Use
  Company Number: GR-009507513-1902GRC002454

PATIENT
  Sex: Female

DRUGS (1)
  1. ONCOTICE [Suspect]
     Active Substance: BACILLUS CALMETTE-GUERIN SUBSTRAIN TICE LIVE ANTIGEN
     Indication: BLADDER CANCER
     Dosage: INDUCTION COURSE OF 6 WEEKLY
     Route: 043

REACTIONS (3)
  - Bladder cancer recurrent [Unknown]
  - Treatment failure [Unknown]
  - Drug intolerance [Unknown]
